FAERS Safety Report 9869672 (Version 1)
Quarter: 2014Q1

REPORT INFORMATION
  Report Type: Spontaneous
  Country: BR (occurrence: BR)
  Receive Date: 20140205
  Receipt Date: 20140205
  Transmission Date: 20141002
  Serious: Yes (Other)
  Sender: FDA-Public Use
  Company Number: BR-JNJFOC-20140116039

PATIENT
  Age: 51 Year
  Sex: Female
  Weight: 43 kg

DRUGS (2)
  1. TYLEX [Suspect]
     Indication: ANALGESIC THERAPY
     Route: 065
     Dates: start: 20131212, end: 20131214
  2. VITAMINS,NOS [Concomitant]
     Indication: VITAMIN SUPPLEMENTATION
     Route: 065
     Dates: start: 201306

REACTIONS (6)
  - Dyspnoea [Not Recovered/Not Resolved]
  - Heart rate increased [Not Recovered/Not Resolved]
  - Paraesthesia [Recovered/Resolved]
  - Insomnia [Not Recovered/Not Resolved]
  - Nausea [Recovered/Resolved]
  - Hyperhidrosis [Recovered/Resolved]
